FAERS Safety Report 16200395 (Version 1)
Quarter: 2019Q2

REPORT INFORMATION
  Report Type: Spontaneous
  Country: DE (occurrence: DE)
  Receive Date: 20190416
  Receipt Date: 20190416
  Transmission Date: 20190711
  Serious: Yes (Hospitalization)
  Sender: FDA-Public Use
  Company Number: DE-TEVA-2019-DE-1037125

PATIENT
  Age: 55 Year
  Sex: Female
  Weight: 76 kg

DRUGS (4)
  1. ACC [Concomitant]
     Active Substance: ACETYLCYSTEINE
     Indication: BRONCHITIS
     Dosage: 2 DOSAGE FORMS DAILY;
     Route: 048
  2. IBUPROFEN. [Concomitant]
     Active Substance: IBUPROFEN
     Indication: BRONCHITIS
     Dosage: 2 DOSAGE FORMS DAILY;
     Route: 048
  3. CODEINE [Concomitant]
     Active Substance: CODEINE
     Indication: BRONCHITIS
     Dosage: 30 MILLIGRAM DAILY;
     Route: 048
  4. AMOXICILLIN. [Suspect]
     Active Substance: AMOXICILLIN
     Indication: BRONCHITIS
     Dosage: DAILY DOSE: 1000 MG MILLGRAM(S) EVERY TOTAL
     Route: 048

REACTIONS (5)
  - Hypersensitivity [Recovered/Resolved]
  - Tachycardia [Recovered/Resolved]
  - Rash maculo-papular [Recovering/Resolving]
  - Tachyarrhythmia [Recovered/Resolved]
  - Diarrhoea [Recovered/Resolved]

NARRATIVE: CASE EVENT DATE: 20190228
